FAERS Safety Report 25412516 (Version 1)
Quarter: 2025Q2

REPORT INFORMATION
  Report Type: Spontaneous
  Country: US (occurrence: None)
  Receive Date: 20250606
  Receipt Date: 20250606
  Transmission Date: 20250717
  Serious: Yes (Other)
  Sender: FDA-CTU
  Company Number: None

PATIENT
  Age: 62 Year
  Sex: Female
  Weight: 82.8 kg

DRUGS (7)
  1. FLUOROURACIL [Suspect]
     Active Substance: FLUOROURACIL
     Indication: Actinic keratosis
     Dosage: OTHER QUANTITY : 1 DAB;?FREQUENCY : TWICE A DAY;?STRENGTH: 5% 4G CREAM G GRAM(S)
     Route: 061
     Dates: start: 20250527, end: 20250601
  2. VITAMIN D [Concomitant]
     Active Substance: VITAMIN D NOS
  3. MULTI-VITAMIN [Concomitant]
     Active Substance: .ALPHA.-TOCOPHEROL ACETATE, DL-\ASCORBIC ACID\CYANOCOBALAMIN\FLUORIDE ION\FOLIC ACID\NIACIN\PYRIDOXI
  4. MACAFEM [Concomitant]
  5. PROBIOTICS NOS [Concomitant]
     Active Substance: PROBIOTICS NOS
  6. OMEGA SUPPLEMENT [Concomitant]
  7. GARDEN OF LIFE RAW ORGANIC FIT SHAKE (4 TIMES A WEEK) [Concomitant]

REACTIONS (12)
  - Headache [None]
  - Skin burning sensation [None]
  - Skin burning sensation [None]
  - Insomnia [None]
  - Scab [None]
  - Abdominal pain [None]
  - Back pain [None]
  - Eructation [None]
  - Oropharyngeal discomfort [None]
  - Chest discomfort [None]
  - Muscle spasms [None]
  - Faeces soft [None]

NARRATIVE: CASE EVENT DATE: 20250529
